FAERS Safety Report 12133458 (Version 2)
Quarter: 2016Q2

REPORT INFORMATION
  Report Type: Spontaneous
  Country: US (occurrence: US)
  Receive Date: 20160301
  Receipt Date: 20160420
  Transmission Date: 20160815
  Serious: Yes (Other)
  Sender: FDA-Public Use
  Company Number: US-JAZZ-2016-US-003743

PATIENT
  Age: 37 Year
  Sex: Female
  Weight: 105 kg

DRUGS (2)
  1. XYREM [Suspect]
     Active Substance: SODIUM OXYBATE
     Dosage: 18 ML
     Route: 048
     Dates: start: 20151129, end: 20151129
  2. XYREM [Suspect]
     Active Substance: SODIUM OXYBATE
     Indication: NARCOLEPSY
     Dosage: UNK
     Route: 048

REACTIONS (5)
  - Lethargy [Recovered/Resolved]
  - Accidental exposure to product [Unknown]
  - Coma [Recovered/Resolved]
  - Intentional product use issue [Unknown]
  - Somnolence [Recovered/Resolved]

NARRATIVE: CASE EVENT DATE: 201511
